FAERS Safety Report 11532103 (Version 1)
Quarter: 2015Q3

REPORT INFORMATION
  Report Type: Spontaneous
  Country: US (occurrence: US)
  Receive Date: 20150903
  Receipt Date: 20150903
  Transmission Date: 20151125
  Serious: No
  Sender: FDA-Public Use
  Company Number: US-ELI_LILLY_AND_COMPANY-US201112003508

PATIENT
  Sex: Male

DRUGS (3)
  1. HUMALOG [Suspect]
     Active Substance: INSULIN LISPRO
     Indication: DIABETES MELLITUS
     Dosage: 35 U, TID
     Dates: start: 2008
  2. LANTUS [Concomitant]
     Active Substance: INSULIN GLARGINE
     Dosage: 50 U, BID
  3. METFORMIN [Concomitant]
     Active Substance: METFORMIN HYDROCHLORIDE
     Dosage: 500 MG, TID

REACTIONS (2)
  - Neuropathy peripheral [Unknown]
  - Eye operation [Recovered/Resolved]

NARRATIVE: CASE EVENT DATE: 2008
